FAERS Safety Report 14524260 (Version 3)
Quarter: 2018Q4

REPORT INFORMATION
  Report Type: Spontaneous
  Country: US (occurrence: US)
  Receive Date: 20180213
  Receipt Date: 20181011
  Transmission Date: 20190204
  Serious: Yes (Other)
  Sender: FDA-Public Use
  Company Number: US-ASTRAZENECA-2018SE17018

PATIENT
  Sex: Female
  Weight: 140.6 kg

DRUGS (43)
  1. NEXIUM [Suspect]
     Active Substance: ESOMEPRAZOLE MAGNESIUM
     Indication: GASTROINTESTINAL DISORDER
     Dosage: 40.0MG UNKNOWN
     Route: 048
     Dates: start: 2003, end: 2015
  2. NEXIUM [Suspect]
     Active Substance: ESOMEPRAZOLE MAGNESIUM
     Indication: GASTROINTESTINAL DISORDER
     Dosage: ESOMEPRAZOLE40.0MG UNKNOWN
     Route: 048
     Dates: start: 2015, end: 2016
  3. TRAMADOL. [Concomitant]
     Active Substance: TRAMADOL
     Indication: PAIN
     Dosage: 50.0MG UNKNOWN
     Route: 048
     Dates: start: 20041007, end: 2005
  4. DRAMAMINE [Concomitant]
     Active Substance: DIMENHYDRINATE
     Indication: NAUSEA
     Dates: start: 2012
  5. AMILORIDE HCL [Concomitant]
     Active Substance: AMILORIDE HYDROCHLORIDE
     Route: 048
     Dates: start: 20141217
  6. CYMBALTA [Concomitant]
     Active Substance: DULOXETINE HYDROCHLORIDE
     Indication: DEPRESSION
     Dosage: 30.0MG UNKNOWN
     Route: 048
     Dates: start: 20041122, end: 2013
  7. GABITRIL [Concomitant]
     Active Substance: TIAGABINE HYDROCHLORIDE
     Indication: SEIZURE
     Dosage: 4.0MG UNKNOWN
     Route: 048
     Dates: start: 20050506, end: 2008
  8. ZANTAC  150 OTC [Concomitant]
     Dates: start: 2013, end: 2015
  9. LYRICA [Concomitant]
     Active Substance: PREGABALIN
     Dosage: 50.0MG UNKNOWN
     Route: 048
     Dates: start: 20080718
  10. TEMAZEPAM. [Concomitant]
     Active Substance: TEMAZEPAM
     Indication: ABNORMAL SLEEP-RELATED EVENT
     Dosage: TAKE 1 CAPSULE AT BEDTIME AS NEEDED FOR SLEEP15.0MG UNKNOWN
     Route: 048
  11. NEXIUM [Suspect]
     Active Substance: ESOMEPRAZOLE MAGNESIUM
     Indication: GASTROINTESTINAL DISORDER
     Dosage: 40.0MG UNKNOWN
     Route: 048
     Dates: start: 2003, end: 2015
  12. PRILOSEC OTC [Suspect]
     Active Substance: OMEPRAZOLE MAGNESIUM
     Indication: GASTROINTESTINAL DISORDER
     Dosage: 20.0MG UNKNOWN
     Route: 048
     Dates: start: 2003, end: 2016
  13. PRILOSEC OTC [Suspect]
     Active Substance: OMEPRAZOLE MAGNESIUM
     Indication: GASTROINTESTINAL DISORDER
     Dosage: 20.0MG UNKNOWN
     Route: 048
     Dates: start: 2008
  14. NEURONTIN [Concomitant]
     Active Substance: GABAPENTIN
     Indication: PAIN
     Dosage: 100.0MG UNKNOWN
     Route: 048
     Dates: start: 20040726, end: 2008
  15. MAGNESIUM OXIDE. [Concomitant]
     Active Substance: MAGNESIUM OXIDE
     Indication: DYSPEPSIA
     Dosage: 250.0MG UNKNOWN
     Route: 048
     Dates: start: 20140811
  16. CEFDINIR. [Concomitant]
     Active Substance: CEFDINIR
     Route: 048
  17. MULTIVITAMINS [Concomitant]
     Active Substance: VITAMINS
     Indication: ROUTINE HEALTH MAINTENANCE
  18. LIPITOR [Concomitant]
     Active Substance: ATORVASTATIN CALCIUM
     Indication: BLOOD CHOLESTEROL INCREASED
  19. TYLENOL [Concomitant]
     Active Substance: ACETAMINOPHEN
     Indication: ARTHRITIS
     Route: 048
     Dates: start: 2014
  20. MORPHINE SULFATE. [Concomitant]
     Active Substance: MORPHINE SULFATE
     Dosage: 15 MG IR
     Dates: start: 20090503
  21. NEXIUM [Suspect]
     Active Substance: ESOMEPRAZOLE MAGNESIUM
     Indication: GASTROINTESTINAL DISORDER
     Dosage: ESOMEPRAZOLE40.0MG UNKNOWN
     Route: 048
     Dates: start: 2015, end: 2016
  22. PRILOSEC OTC [Suspect]
     Active Substance: OMEPRAZOLE MAGNESIUM
     Indication: GASTROINTESTINAL DISORDER
     Dosage: 20.0MG UNKNOWN
     Route: 048
     Dates: start: 2003, end: 2016
  23. TRIAMTERENE. [Concomitant]
     Active Substance: TRIAMTERENE
     Indication: HYPERTENSION
     Dates: start: 20040416, end: 2013
  24. TAGAMET HB OTC [Concomitant]
     Dates: start: 2013, end: 2015
  25. ROLAIDS [Concomitant]
     Active Substance: CALCIUM CARBONATE\MAGNESIUM HYDROXIDE
     Dates: start: 1970, end: 2011
  26. LORAZEPAM. [Concomitant]
     Active Substance: LORAZEPAM
     Indication: ANXIETY
     Dosage: 0.5MG UNKNOWN
     Route: 048
     Dates: start: 20050217, end: 2016
  27. ASMANEX [Concomitant]
     Active Substance: MOMETASONE FUROATE
     Dosage: INHALE 2 PUFFS TWICE DAILY, 60 METERED DOSES 220 MCG/INH
     Dates: start: 20140721
  28. TRAZODONE [Concomitant]
     Active Substance: TRAZODONE HYDROCHLORIDE
     Indication: DEPRESSION
     Dosage: 50.0MG UNKNOWN
     Route: 048
     Dates: start: 20040401, end: 2008
  29. PEPCID AC [Concomitant]
     Active Substance: FAMOTIDINE
     Dates: start: 2013, end: 2015
  30. MAALOX ANTACID [Concomitant]
     Active Substance: ALUMINUM HYDROXIDE\DIMETHICONE\MAGNESIUM HYDROXIDE
     Dates: start: 1970, end: 2011
  31. OMEPRAZOLE. [Suspect]
     Active Substance: OMEPRAZOLE
     Indication: GASTROINTESTINAL DISORDER
     Route: 048
     Dates: start: 2008
  32. PREVACID [Suspect]
     Active Substance: LANSOPRAZOLE
     Indication: GASTROINTESTINAL DISORDER
     Dosage: 30.0MG UNKNOWN
     Route: 065
     Dates: start: 2009
  33. POTASSIUM CHLORIDE. [Concomitant]
     Active Substance: POTASSIUM CHLORIDE
     Indication: BLOOD POTASSIUM ABNORMAL
     Dosage: 20 TBCR
     Route: 048
     Dates: start: 20110523, end: 2016
  34. TUMS [Concomitant]
     Active Substance: CALCIUM CARBONATE
     Dates: start: 1970, end: 2011
  35. CYCLOBENZAPRINE. [Concomitant]
     Active Substance: CYCLOBENZAPRINE
     Indication: MUSCLE SPASMS
     Dosage: TAKE 1 TABLET 2-3 TIMES DAILY10.0MG UNKNOWN
     Route: 048
  36. ALBUTEROL SULFATE. [Concomitant]
     Active Substance: ALBUTEROL SULFATE
     Dosage: USE 1 VIAL IN NEBULIZER EVERY 4 HOURS
     Dates: start: 20150606
  37. FLUTICASONE PROPIONATE. [Concomitant]
     Active Substance: FLUTICASONE PROPIONATE
     Dosage: 50 MCG/ACT NASAL SUSPENSION; USE 2 SPRAYS IN EACH NOSTRIL
     Dates: start: 20150506
  38. ALKA-SELTZER [Concomitant]
     Active Substance: ANHYDROUS CITRIC ACID\ASPIRIN\SODIUM BICARBONATE
     Dates: start: 1970, end: 2011
  39. PRILOSEC OTC [Suspect]
     Active Substance: OMEPRAZOLE MAGNESIUM
     Indication: GASTROINTESTINAL DISORDER
     Dosage: 20.0MG UNKNOWN
     Route: 048
     Dates: start: 2008
  40. PREVACID [Suspect]
     Active Substance: LANSOPRAZOLE
     Indication: GASTROINTESTINAL DISORDER
     Dosage: 30.0MG UNKNOWN
     Route: 065
     Dates: start: 2009
  41. CLONAZEPAM. [Concomitant]
     Active Substance: CLONAZEPAM
     Indication: ANXIETY
     Dosage: 1.0MG UNKNOWN
     Route: 048
     Dates: start: 20050422, end: 2014
  42. MYLANTA [Concomitant]
     Active Substance: ALUMINUM HYDROXIDE\DIMETHICONE\MAGNESIUM HYDROXIDE
     Dates: start: 1970, end: 2011
  43. PEPTO-BISMOL [Concomitant]
     Active Substance: BISMUTH SUBSALICYLATE
     Dates: start: 1970, end: 2011

REACTIONS (1)
  - Chronic kidney disease [Not Recovered/Not Resolved]
